FAERS Safety Report 7677583-1 (Version None)
Quarter: 2011Q3

REPORT INFORMATION
  Report Type: 
  Country: None (occurrence: None)
  Receive Date: 20110811
  Receipt Date: 20110811
  Transmission Date: 20111222
  Serious: Yes (Hospitalization)
  Sender: FDA-Public Use
  Company Number: None

PATIENT
  Age: 33 Year
  Sex: Male
  Weight: 50.8 kg

DRUGS (10)
  1. ATRIPLA [Suspect]
     Indication: HIV INFECTION
     Dosage: 1 TABLET
     Route: 048
     Dates: start: 20080101, end: 20110810
  2. WARFARIN [Concomitant]
  3. BENADRYL [Concomitant]
  4. ROBAXIN [Concomitant]
  5. PANTOPRAZOLE [Concomitant]
  6. PHENERGAN HCL [Concomitant]
  7. OXYCODONE HCL [Concomitant]
  8. TPN [Concomitant]
     Route: 042
  9. OCTREOTIDE INJECTIONS [Concomitant]
  10. PANCRELIPASE [Concomitant]

REACTIONS (1)
  - PANCREATITIS ACUTE [None]
